FAERS Safety Report 11718803 (Version 1)
Quarter: 2015Q4

REPORT INFORMATION
  Report Type: Spontaneous
  Country: US (occurrence: US)
  Receive Date: 20151110
  Receipt Date: 20151110
  Transmission Date: 20160304
  Serious: Yes (Hospitalization, Other)
  Sender: FDA-Public Use
  Company Number: US-GLAXOSMITHKLINE-US2015159392

PATIENT
  Age: 68 Year
  Sex: Female

DRUGS (4)
  1. LYRICA [Concomitant]
     Active Substance: PREGABALIN
  2. METOPROLOL [Concomitant]
     Active Substance: METOPROLOL
  3. TRAMADOL. [Concomitant]
     Active Substance: TRAMADOL
  4. ADVAIR DISKUS [Suspect]
     Active Substance: FLUTICASONE PROPIONATE\SALMETEROL XINAFOATE
     Indication: ASTHMA
     Dosage: 1 PUFF(S), BID
     Route: 055

REACTIONS (8)
  - Shoulder arthroplasty [Recovering/Resolving]
  - Fall [Recovered/Resolved]
  - Cataract operation [Recovering/Resolving]
  - Joint dislocation [Recovered/Resolved]
  - Vision blurred [Not Recovered/Not Resolved]
  - Hip arthroplasty [Recovering/Resolving]
  - Arthropathy [Unknown]
  - Ankle fracture [Recovered/Resolved]

NARRATIVE: CASE EVENT DATE: 2008
